FAERS Safety Report 4400714-3 (Version None)
Quarter: 2004Q3

REPORT INFORMATION
  Report Type: 
  Country: None (occurrence: None)
  Receive Date: 20040714
  Receipt Date: 20040629
  Transmission Date: 20050211
  Serious: Yes (Hospitalization)
  Sender: FDA-Public Use
  Company Number: 2004-BP-05180NB (0)

PATIENT
  Age: 80 Year
  Sex: Male

DRUGS (9)
  1. MICARDIS [Suspect]
     Indication: HYPERTENSION
     Dosage: 20 MG (20 MG)  PO
     Route: 048
     Dates: start: 20040205, end: 20040517
  2. NORVASC [Concomitant]
  3. NITOROL R [Concomitant]
  4. BUFFERIN [Concomitant]
  5. SELBEX (TEPRENONE) [Concomitant]
  6. ANPLAG (SARPOGRELATE HYDROCHLORIDE) [Concomitant]
  7. PLETAL [Concomitant]
  8. PROSTANDIN (ALPROSTADIL) [Concomitant]
  9. ALDACTONE [Concomitant]

REACTIONS (3)
  - CONDITION AGGRAVATED [None]
  - NEPHROGENIC ANAEMIA [None]
  - RENAL IMPAIRMENT [None]
